FAERS Safety Report 9437184 (Version 1)
Quarter: 2013Q3

REPORT INFORMATION
  Report Type: Spontaneous
  Country: CH (occurrence: CH)
  Receive Date: 20130802
  Receipt Date: 20130802
  Transmission Date: 20140515
  Serious: Yes (Other)
  Sender: FDA-Public Use
  Company Number: PHHY2013CH079956

PATIENT
  Sex: Male

DRUGS (4)
  1. ZOMETA [Suspect]
     Indication: PLASMA CELL MYELOMA
     Dosage: 4 MG/5 ML
     Route: 041
     Dates: start: 2010, end: 2012
  2. REVLIMID [Suspect]
     Indication: PLASMA CELL MYELOMA
     Dosage: UNK UKN, UNK
     Route: 048
  3. ASPIRIN CARDIO [Concomitant]
     Dosage: UNK UKN, UNK
     Route: 048
  4. STILNOX [Concomitant]
     Indication: INSOMNIA
     Dosage: UNK UKN, UNK
     Route: 048

REACTIONS (1)
  - Osteonecrosis of jaw [Not Recovered/Not Resolved]
